FAERS Safety Report 24647527 (Version 1)
Quarter: 2024Q4

REPORT INFORMATION
  Report Type: Spontaneous
  Country: US (occurrence: None)
  Receive Date: 20241120
  Receipt Date: 20241120
  Transmission Date: 20250114
  Serious: Yes (Hospitalization, Other)
  Sender: Public
  Company Number: None

PATIENT
  Age: 68 Year
  Sex: Male

DRUGS (14)
  1. TACROLIMUS [Suspect]
     Active Substance: TACROLIMUS
     Indication: Lung transplant
     Dosage: OTHER FREQUENCY : 2 MG QAM 2.5MG QPM;?
     Route: 048
     Dates: start: 20230810
  2. MYCOPHENOLIC ACID [Suspect]
     Active Substance: MYCOPHENOLIC ACID
     Indication: Lung transplant
     Dosage: FREQUENCY : TWICE A DAY;?
     Route: 048
     Dates: start: 20230720, end: 20240801
  3. GABAPENTIN [Concomitant]
     Active Substance: GABAPENTIN
     Dates: start: 20230823
  4. ESCITALOPRAM [Concomitant]
     Active Substance: ESCITALOPRAM OXALATE
     Dates: start: 20240820
  5. ELIQUIS [Concomitant]
     Active Substance: APIXABAN
     Dates: start: 20230810
  6. Acetylcysteine 10 % [Concomitant]
     Dates: start: 20230710
  7. HYDROXYZINE HYDROCHLORIDE [Concomitant]
     Active Substance: HYDROXYZINE HYDROCHLORIDE
     Dates: start: 20240820
  8. FAMOTIDINE [Concomitant]
     Active Substance: FAMOTIDINE
     Dates: start: 20230810
  9. Mag-tab SR 84 mg [Concomitant]
     Dates: start: 20230830
  10. QUETIAPINE [Concomitant]
     Active Substance: QUETIAPINE
     Dates: start: 20240820
  11. Vitamin D 50,000 U [Concomitant]
     Dates: start: 20240820
  12. CLONIDINE [Concomitant]
     Active Substance: CLONIDINE
     Dates: start: 20240820
  13. Atovaquone 750 mg / 5mL [Concomitant]
     Dates: start: 20230906
  14. Calcium 600mg + Vit D 400 units [Concomitant]
     Dates: start: 20230526

REACTIONS (4)
  - Dyspnoea [None]
  - Dyspnoea [None]
  - Pulmonary mass [None]
  - Therapy cessation [None]
